FAERS Safety Report 8187967-3 (Version None)
Quarter: 2012Q1

REPORT INFORMATION
  Report Type: 
  Country: None (occurrence: None)
  Receive Date: 20120306
  Receipt Date: 20120302
  Transmission Date: 20120608
  Serious: Yes (Other)
  Sender: FDA-Public Use
  Company Number: FR-JNJFOC-20120301735

PATIENT
  Age: 47 Year
  Sex: Female

DRUGS (1)
  1. NICOTINE [Suspect]
     Indication: SMOKING CESSATION THERAPY
     Dosage: 12 PIECES DAILY
     Route: 048
     Dates: start: 20050101

REACTIONS (4)
  - DEPENDENCE [None]
  - ABDOMINAL DISTENSION [None]
  - INTENTIONAL DRUG MISUSE [None]
  - TOOTH INJURY [None]
